FAERS Safety Report 21853855 (Version 3)
Quarter: 2023Q2

REPORT INFORMATION
  Report Type: Other
  Country: DO (occurrence: DO)
  Receive Date: 20230112
  Receipt Date: 20230601
  Transmission Date: 20230722
  Serious: Yes (Other)
  Sender: FDA-Public Use
  Company Number: DO-002147023-NVSC2022DO229759

PATIENT
  Age: 43 Year
  Sex: Male
  Weight: 69.853 kg

DRUGS (4)
  1. XOLAIR [Suspect]
     Active Substance: OMALIZUMAB
     Indication: Asthma
     Dosage: 300 MG, QMO
     Route: 058
     Dates: start: 202204
  2. XOLAIR [Suspect]
     Active Substance: OMALIZUMAB
     Indication: Allergic cough
     Dosage: 300 MG, QMO
     Route: 058
     Dates: start: 202205, end: 202208
  3. XOLAIR [Suspect]
     Active Substance: OMALIZUMAB
     Dosage: 300 MG, QMO
     Route: 058
     Dates: start: 20220906
  4. XOLAIR [Suspect]
     Active Substance: OMALIZUMAB
     Dosage: 300 MG, QMO
     Route: 058
     Dates: start: 20221006

REACTIONS (5)
  - Asthmatic crisis [Not Recovered/Not Resolved]
  - Malaise [Not Recovered/Not Resolved]
  - Cough [Unknown]
  - Feeling abnormal [Not Recovered/Not Resolved]
  - Product use in unapproved indication [Unknown]

NARRATIVE: CASE EVENT DATE: 20220501
